FAERS Safety Report 8300387-3 (Version None)
Quarter: 2012Q2

REPORT INFORMATION
  Report Type: 
  Country: None (occurrence: None)
  Receive Date: 20120420
  Receipt Date: 20120418
  Transmission Date: 20120825
  Serious: Yes (Other)
  Sender: FDA-Public Use
  Company Number: US-PFIZER INC-2012070076

PATIENT
  Sex: Female
  Weight: 68.9 kg

DRUGS (10)
  1. PROGESTERONE [Suspect]
     Indication: HOT FLUSH
  2. PROGESTERONE [Suspect]
     Indication: ANXIETY
  3. ESTRADIOL [Suspect]
     Indication: MOOD SWINGS
  4. PROGESTERONE [Suspect]
     Indication: MENOPAUSAL SYMPTOMS
     Dosage: 1.25 MG, 1X/DAY
     Route: 048
     Dates: start: 20120201, end: 20120201
  5. PROGESTERONE [Suspect]
     Indication: MOOD SWINGS
  6. PREMPRO [Concomitant]
     Indication: MENOPAUSAL SYMPTOMS
     Dosage: 0.45/1.5MG
     Route: 048
     Dates: end: 20120101
  7. ESTRADIOL [Suspect]
     Indication: MENOPAUSAL SYMPTOMS
     Dosage: 0.5 MG, 1X/DAY
     Route: 048
     Dates: start: 20120201, end: 20120201
  8. ESTRADIOL [Suspect]
     Indication: ANXIETY
  9. ESTRADIOL [Suspect]
     Indication: HOT FLUSH
  10. PREMPRO [Concomitant]
     Indication: HOT FLUSH

REACTIONS (5)
  - ARTHRITIS [None]
  - MUSCULOSKELETAL PAIN [None]
  - HYPOKINESIA [None]
  - PAIN [None]
  - ARTHRALGIA [None]
